FAERS Safety Report 8869584 (Version 1)
Quarter: 2012Q4

REPORT INFORMATION
  Report Type: 
  Country: US (occurrence: US)
  Receive Date: 20121028
  Receipt Date: 20121028
  Transmission Date: 20130627
  Serious: Yes (Other)
  Sender: FDA-Public Use
  Company Number: US-JNJFOC-20121009180

PATIENT
  Age: 68 Year
  Sex: Female

DRUGS (6)
  1. LEVAQUIN [Suspect]
     Indication: PROPHYLAXIS
     Route: 065
     Dates: start: 2010, end: 2010
  2. ATENOLOL [Concomitant]
     Indication: PRODUCT USED FOR UNKNOWN INDICATION
     Route: 065
  3. AMLODIPINE BESYLATE [Concomitant]
     Indication: PRODUCT USED FOR UNKNOWN INDICATION
     Route: 065
  4. RABEPRAZOLE SODIUM [Concomitant]
     Indication: PRODUCT USED FOR UNKNOWN INDICATION
     Route: 065
  5. DIPHENHYDRAMINE HYDROCHLORIDE [Concomitant]
     Indication: PRODUCT USED FOR UNKNOWN INDICATION
     Route: 065
  6. ASPIRIN [Concomitant]
     Indication: PRODUCT USED FOR UNKNOWN INDICATION
     Dosage: low dose
     Route: 065

REACTIONS (4)
  - Uveitis [Recovering/Resolving]
  - Chorioretinal disorder [Recovering/Resolving]
  - Macule [Unknown]
  - Rash pustular [Unknown]
